FAERS Safety Report 18283165 (Version 4)
Quarter: 2022Q2

REPORT INFORMATION
  Report Type: Spontaneous
  Country: US (occurrence: US)
  Receive Date: 20200918
  Receipt Date: 20220107
  Transmission Date: 20220720
  Serious: Yes (Hospitalization, Other)
  Sender: FDA-Public Use
  Company Number: US-VERTEX PHARMACEUTICALS-2020-018152

PATIENT
  Sex: Female
  Weight: 49 kg

DRUGS (1)
  1. SYMDEKO [Suspect]
     Active Substance: IVACAFTOR\TEZACAFTOR
     Indication: Cystic fibrosis
     Dosage: 100MG TEZACAFTOR/ 150MG IVACAFTOR AND 150MG IVACAFTOR
     Route: 048
     Dates: start: 20180327, end: 20191010

REACTIONS (10)
  - Infective pulmonary exacerbation of cystic fibrosis [Recovering/Resolving]
  - Haemoptysis [Recovering/Resolving]
  - Suicidal ideation [Unknown]
  - Bipolar disorder [Recovering/Resolving]
  - Chest discomfort [Not Recovered/Not Resolved]
  - Arthropathy [Not Recovered/Not Resolved]
  - Fatigue [Not Recovered/Not Resolved]
  - Acquired Von Willebrand^s disease [Unknown]
  - Hypersomnia [Not Recovered/Not Resolved]
  - Depression [Recovering/Resolving]
